FAERS Safety Report 18964904 (Version 1)
Quarter: 2021Q1

REPORT INFORMATION
  Report Type: Spontaneous
  Country: US (occurrence: US)
  Receive Date: 20210303
  Receipt Date: 20210303
  Transmission Date: 20210420
  Serious: No
  Sender: FDA-Public Use
  Company Number: US-AMNEAL PHARMACEUTICALS-2020-AMRX-01219

PATIENT
  Age: 62 Year
  Sex: Male

DRUGS (3)
  1. RYTARY [Suspect]
     Active Substance: CARBIDOPA\LEVODOPA
     Indication: PARKINSON^S DISEASE
     Dosage: 3 CAPSULES, EVERY 4HR
     Route: 048
     Dates: start: 20191017
  2. RYTARY [Suspect]
     Active Substance: CARBIDOPA\LEVODOPA
     Dosage: 2 CAPSULES, EVERY 4HR
     Route: 048
     Dates: start: 202001, end: 202001
  3. RYTARY [Suspect]
     Active Substance: CARBIDOPA\LEVODOPA
     Dosage: 1 CAPSULES, EVERY 4HR
     Route: 048
     Dates: start: 202001

REACTIONS (4)
  - Dyspnoea [Unknown]
  - Dyskinesia [Not Recovered/Not Resolved]
  - Prescribed overdose [Unknown]
  - Movement disorder [Unknown]

NARRATIVE: CASE EVENT DATE: 20191017
